FAERS Safety Report 7437162-8 (Version None)
Quarter: 2011Q2

REPORT INFORMATION
  Report Type: 
  Country: None (occurrence: None)
  Receive Date: 20110426
  Receipt Date: 20110414
  Transmission Date: 20111010
  Serious: Yes (Other)
  Sender: FDA-Public Use
  Company Number: AU-JNJFOC-20110406391

PATIENT
  Sex: Female

DRUGS (1)
  1. INVEGA SUSTENNA [Suspect]
     Indication: PRODUCT USED FOR UNKNOWN INDICATION
     Dosage: FOR ONE MONTH
     Route: 030

REACTIONS (3)
  - MOVEMENT DISORDER [None]
  - SEXUAL DYSFUNCTION [None]
  - ABNORMAL WEIGHT GAIN [None]
